FAERS Safety Report 5645847-9 (Version None)
Quarter: 2008Q1

REPORT INFORMATION
  Report Type: 
  Country: None (occurrence: None)
  Receive Date: 20080229
  Receipt Date: 20080218
  Transmission Date: 20080703
  Serious: Yes (Death)
  Sender: FDA-Public Use
  Company Number: MX-BAYER-200811561LA

PATIENT
  Age: 27 Year
  Sex: Female

DRUGS (3)
  1. MAB CAMPATH [Suspect]
     Indication: ACUTE GRAFT VERSUS HOST DISEASE
     Route: 058
  2. CYCLOSPORINE [Concomitant]
     Indication: GRAFT VERSUS HOST DISEASE
  3. CORTICOSTEROIDS [Concomitant]
     Indication: GRAFT VERSUS HOST DISEASE

REACTIONS (2)
  - MULTI-ORGAN FAILURE [None]
  - SEPSIS [None]
